FAERS Safety Report 9796495 (Version 1)
Quarter: 2014Q1

REPORT INFORMATION
  Report Type: Spontaneous
  Country: FR (occurrence: FR)
  Receive Date: 20140103
  Receipt Date: 20140103
  Transmission Date: 20141002
  Serious: Yes (Hospitalization)
  Sender: FDA-Public Use
  Company Number: FR-GLAXOSMITHKLINE-B0955895A

PATIENT
  Age: 52 Year
  Sex: Female
  Weight: 55 kg

DRUGS (1)
  1. ARIXTRA [Suspect]
     Indication: THROMBOSIS PROPHYLAXIS
     Dosage: 2.5MG PER DAY
     Route: 058
     Dates: start: 20131125, end: 20131213

REACTIONS (4)
  - Breast haematoma [Recovered/Resolved with Sequelae]
  - Haematoma [Unknown]
  - Suture rupture [Not Recovered/Not Resolved]
  - Haematoma evacuation [Recovered/Resolved with Sequelae]
